FAERS Safety Report 17318333 (Version 1)
Quarter: 2020Q1

REPORT INFORMATION
  Report Type: Report from Study
  Country: US (occurrence: US)
  Receive Date: 20200124
  Receipt Date: 20200124
  Transmission Date: 20200409
  Serious: Yes (Hospitalization)
  Sender: FDA-Public Use
  Company Number: US-EISAI MEDICAL RESEARCH-EC-2019-064213

PATIENT
  Age: 71 Year
  Sex: Female
  Weight: 63 kg

DRUGS (16)
  1. KEYTRUDA [Suspect]
     Active Substance: PEMBROLIZUMAB
     Dosage: UNKNOWN DOSE
     Dates: start: 20200117
  2. IMIPRAMINE [Concomitant]
     Active Substance: IMIPRAMINE
  3. CRESTOR [Concomitant]
     Active Substance: ROSUVASTATIN CALCIUM
  4. TELMISARTAN. [Concomitant]
     Active Substance: TELMISARTAN
  5. LENVIMA [Suspect]
     Active Substance: LENVATINIB
     Dosage: REDUCED DOSE
     Route: 048
     Dates: start: 2019, end: 201912
  6. SYNTHROID [Concomitant]
     Active Substance: LEVOTHYROXINE SODIUM
  7. COMPAZINE [Concomitant]
     Active Substance: PROCHLORPERAZINE MALEATE
  8. LENVIMA [Suspect]
     Active Substance: LENVATINIB
     Indication: ENDOMETRIAL NEOPLASM
     Route: 048
     Dates: start: 20191017, end: 201911
  9. VITAMIN D [Concomitant]
     Active Substance: VITAMIN D NOS
  10. SLOW-MAG [Concomitant]
     Active Substance: MAGNESIUM CHLORIDE
  11. KEYTRUDA [Suspect]
     Active Substance: PEMBROLIZUMAB
     Indication: ENDOMETRIAL NEOPLASM
     Dosage: UNKNOWN DOSE
     Dates: end: 201911
  12. EFFEXOR [Concomitant]
     Active Substance: VENLAFAXINE HYDROCHLORIDE
  13. AMLODIPINE BESYLATE. [Concomitant]
     Active Substance: AMLODIPINE BESYLATE
  14. RITALIN [Concomitant]
     Active Substance: METHYLPHENIDATE HYDROCHLORIDE
  15. HYDROMORPHONE [Concomitant]
     Active Substance: HYDROMORPHONE
  16. NEXIUM [Concomitant]
     Active Substance: ESOMEPRAZOLE MAGNESIUM

REACTIONS (19)
  - Thyroid disorder [Unknown]
  - Tremor [Unknown]
  - Decreased appetite [Unknown]
  - Blood pressure diastolic increased [Unknown]
  - Fatigue [Unknown]
  - Liver function test abnormal [Unknown]
  - Insomnia [Recovering/Resolving]
  - Aphonia [Unknown]
  - Blood pressure increased [Unknown]
  - Pollakiuria [Recovering/Resolving]
  - Memory impairment [Unknown]
  - Blood pressure fluctuation [Unknown]
  - Cough [Unknown]
  - Diarrhoea [Unknown]
  - Vomiting [Recovered/Resolved]
  - Nausea [Unknown]
  - Seizure [Unknown]
  - Platelet count decreased [Unknown]
  - Red blood cell count decreased [Unknown]

NARRATIVE: CASE EVENT DATE: 2019
